FAERS Safety Report 5712755-4 (Version None)
Quarter: 2008Q2

REPORT INFORMATION
  Report Type: 
  Country: None (occurrence: None)
  Receive Date: 20080422
  Receipt Date: 20080415
  Transmission Date: 20081010
  Serious: Yes (Other)
  Sender: FDA-Public Use
  Company Number: US-JNJFOC-20080403402

PATIENT
  Age: 64 Year
  Sex: Female
  Weight: 81.65 kg

DRUGS (2)
  1. LEVAQUIN [Suspect]
     Indication: CYSTITIS
     Route: 048
  2. DILTIAZEM [Concomitant]
     Indication: HYPERTENSION
     Route: 048

REACTIONS (1)
  - THROAT TIGHTNESS [None]
